FAERS Safety Report 23083177 (Version 1)
Quarter: 2023Q4

REPORT INFORMATION
  Report Type: Spontaneous
  Country: US (occurrence: None)
  Receive Date: 20231018
  Receipt Date: 20231018
  Transmission Date: 20240110
  Serious: Yes (Hospitalization)
  Sender: FDA-Public Use
  Company Number: None

PATIENT
  Sex: Male

DRUGS (1)
  1. PIRFENIDONE [Suspect]
     Active Substance: PIRFENIDONE
     Indication: Idiopathic pulmonary fibrosis
     Dosage: FREQUENCY : 3 TIMES A DAY;?
     Route: 030
     Dates: start: 202303

REACTIONS (6)
  - Lower limb fracture [None]
  - Pneumonia [None]
  - Clostridium difficile infection [None]
  - Diarrhoea [None]
  - Abdominal pain upper [None]
  - Therapy interrupted [None]
